FAERS Safety Report 5730190-X (Version None)
Quarter: 2008Q2

REPORT INFORMATION
  Report Type: 
  Country: None (occurrence: None)
  Receive Date: 20080505
  Receipt Date: 20080505
  Transmission Date: 20081010
  Serious: Yes (Hospitalization)
  Sender: FDA-Public Use
  Company Number: None

PATIENT
  Age: 67 Year
  Sex: Male

DRUGS (2)
  1. CEFTRIAXONE [Suspect]
     Indication: INFECTION
     Dosage: 2 GM BID IV
     Route: 042
     Dates: start: 20080419, end: 20080421
  2. VANCOMYCIN [Suspect]
     Dosage: 1000 MG BID IV
     Route: 042
     Dates: start: 20080419, end: 20080421

REACTIONS (4)
  - BLOOD PRESSURE SYSTOLIC INCREASED [None]
  - DIARRHOEA [None]
  - RASH PRURITIC [None]
  - URTICARIA [None]
